FAERS Safety Report 10551633 (Version 3)
Quarter: 2015Q1

REPORT INFORMATION
  Report Type: Spontaneous
  Country: US (occurrence: None)
  Receive Date: 20141027
  Receipt Date: 20150109
  Transmission Date: 20150720
  Serious: Yes (Disabling, Other)
  Sender: FDA-Public Use
  Company Number: 2014-20564

PATIENT
  Age: 79 Year
  Sex: Female

DRUGS (1)
  1. EYLEA [Suspect]
     Active Substance: AFLIBERCEPT
     Indication: AGE-RELATED MACULAR DEGENERATION
     Route: 031
     Dates: start: 20130321, end: 20141002

REACTIONS (4)
  - Endophthalmitis [None]
  - Vitrectomy [None]
  - Streptococcal infection [None]
  - Blindness [None]

NARRATIVE: CASE EVENT DATE: 20141003
